FAERS Safety Report 5109606-8 (Version None)
Quarter: 2006Q3

REPORT INFORMATION
  Report Type: 
  Country: None (occurrence: None)
  Receive Date: 20060731
  Receipt Date: 20060523
  Transmission Date: 20061208
  Serious: No
  Sender: FDA-Public Use
  Company Number: 2006PV014380

PATIENT
  Age: 67 Year
  Sex: Male

DRUGS (3)
  1. BYETTA [Suspect]
     Indication: DIABETES MELLITUS NON-INSULIN-DEPENDENT
     Dosage: 10 MCG : 5 MCG  : BID;SC
     Route: 058
     Dates: start: 20060301, end: 20060501
  2. BYETTA [Suspect]
     Indication: DIABETES MELLITUS NON-INSULIN-DEPENDENT
     Dosage: 10 MCG : 5 MCG  : BID;SC
     Route: 058
     Dates: start: 20060501
  3. B12 ANKERMANN [Concomitant]

REACTIONS (2)
  - ACCIDENTAL NEEDLE STICK [None]
  - INJECTION SITE DISCOMFORT [None]
